FAERS Safety Report 4528726-X (Version None)
Quarter: 2004Q4

REPORT INFORMATION
  Report Type: 
  Country: None (occurrence: None)
  Receive Date: 20041202
  Receipt Date: 20041018
  Transmission Date: 20050328
  Serious: No
  Sender: FDA-Public Use
  Company Number: 200420861BWH

PATIENT
  Age: 61 Year
  Sex: Male

DRUGS (1)
  1. LEVITRA [Suspect]
     Indication: PROSTATECTOMY
     Dosage: 30 MG, TOTAL DAILY, ORAL
     Route: 048
     Dates: start: 20041015

REACTIONS (3)
  - ERECTILE DYSFUNCTION [None]
  - MICTURITION URGENCY [None]
  - URINE FLOW DECREASED [None]
